FAERS Safety Report 24203463 (Version 2)
Quarter: 2025Q4

REPORT INFORMATION
  Report Type: Spontaneous
  Country: US (occurrence: US)
  Receive Date: 20240813
  Receipt Date: 20251020
  Transmission Date: 20260118
  Serious: No
  Sender: NOVARTIS
  Company Number: US-SANDOZ-SDZ2024US062877

PATIENT
  Age: 56 Year
  Sex: Female
  Weight: 117.48 kg

DRUGS (3)
  1. COSENTYX [Suspect]
     Active Substance: SECUKINUMAB
     Indication: Psoriasis
     Dosage: 300 MG, QW4
     Route: 058
     Dates: start: 20190101
  2. COMBIPATCH [Suspect]
     Active Substance: ESTRADIOL\NORETHINDRONE ACETATE
     Indication: Menopausal symptoms
     Dosage: UNK (0.05/0.14)
     Route: 062
     Dates: start: 202406
  3. CORTICOSTEROID NOS [Concomitant]
     Active Substance: CORTICOSTEROID NOS
     Indication: Psoriasis
     Dosage: TOPICAL, HIGH STRENGTH
     Route: 065

REACTIONS (10)
  - Product adhesion issue [Recovered/Resolved]
  - Product ineffective [Not Recovered/Not Resolved]
  - Product dose omission issue [Not Recovered/Not Resolved]
  - COVID-19 [Recovered/Resolved]
  - Pyrexia [Recovered/Resolved]
  - Headache [Recovered/Resolved]
  - Chills [Recovered/Resolved]
  - Myalgia [Recovered/Resolved]
  - Rhinorrhoea [Recovered/Resolved]
  - Cough [Recovered/Resolved]

NARRATIVE: CASE EVENT DATE: 20240601
